FAERS Safety Report 9432281 (Version 1)
Quarter: 2013Q3

REPORT INFORMATION
  Report Type: Spontaneous
  Country: JP (occurrence: JP)
  Receive Date: 20130731
  Receipt Date: 20130731
  Transmission Date: 20140515
  Serious: Yes (Other)
  Sender: FDA-Public Use
  Company Number: PHHY2013JP078330

PATIENT
  Age: 69 Year
  Sex: Male

DRUGS (1)
  1. ACETYLSALICYLIC ACID [Suspect]
     Indication: CEREBRAL INFARCTION
     Dosage: LOW-DOSE UNSPECIFIED

REACTIONS (3)
  - Large intestinal stenosis [Unknown]
  - Large intestinal ulcer [Unknown]
  - Melaena [Unknown]
